FAERS Safety Report 14933661 (Version 2)
Quarter: 2018Q2

REPORT INFORMATION
  Report Type: Report from Study
  Country: CA (occurrence: CA)
  Receive Date: 20180524
  Receipt Date: 20180611
  Transmission Date: 20180711
  Serious: Yes (Other)
  Sender: FDA-Public Use
  Company Number: CA-ROCHE-2128067

PATIENT
  Sex: Female

DRUGS (7)
  1. ISOSORBIDE DINITRATE. [Concomitant]
     Active Substance: ISOSORBIDE DINITRATE
  2. RITUXAN [Suspect]
     Active Substance: RITUXIMAB
     Indication: ENCEPHALITIS AUTOIMMUNE
     Route: 042
     Dates: start: 20180424, end: 20180516
  3. METOPROLOL. [Concomitant]
     Active Substance: METOPROLOL
  4. LINACLOTIDE [Concomitant]
     Active Substance: LINACLOTIDE
  5. IRBESARTAN. [Concomitant]
     Active Substance: IRBESARTAN
  6. AMITRIPTYLINE [Concomitant]
     Active Substance: AMITRIPTYLINE
  7. AMLODIPINE [Concomitant]
     Active Substance: AMLODIPINE BESYLATE

REACTIONS (3)
  - Infection [Unknown]
  - Abnormal behaviour [Unknown]
  - Immunodeficiency [Unknown]
